FAERS Safety Report 8326284-5 (Version None)
Quarter: 2012Q2

REPORT INFORMATION
  Report Type: 
  Country: None (occurrence: None)
  Receive Date: 20120501
  Receipt Date: 20120420
  Transmission Date: 20120825
  Serious: Yes (Hospitalization)
  Sender: FDA-Public Use
  Company Number: JP-VERTEX PHARMACEUTICALS INC.-AE-2012-006005

PATIENT
  Age: 68 Year
  Sex: Male

DRUGS (4)
  1. PEG-INTRON [Concomitant]
     Route: 051
     Dates: start: 20120417
  2. REBETOL [Concomitant]
     Route: 048
     Dates: start: 20120410
  3. PEG-INTRON [Concomitant]
     Route: 051
     Dates: start: 20120410
  4. TELAVIC (TELAPREVIR) [Suspect]
     Route: 048
     Dates: start: 20120410

REACTIONS (4)
  - ASPARTATE AMINOTRANSFERASE INCREASED [None]
  - DYSPHONIA [None]
  - HEPATIC FUNCTION ABNORMAL [None]
  - ALANINE AMINOTRANSFERASE INCREASED [None]
